FAERS Safety Report 12996531 (Version 1)
Quarter: 2016Q4

REPORT INFORMATION
  Report Type: Report from Study
  Country: KR (occurrence: KR)
  Receive Date: 20161204
  Receipt Date: 20161204
  Transmission Date: 20170207
  Serious: Yes (Hospitalization)
  Sender: FDA-Public Use
  Company Number: KR-GLAXOSMITHKLINE-KR2016GSK157430

PATIENT
  Age: 41 Year
  Weight: 88 kg

DRUGS (9)
  1. DEPAKOTE [Concomitant]
     Active Substance: DIVALPROEX SODIUM
     Indication: PERSONALITY DISORDER
     Dosage: 4 DF, QD
     Route: 048
     Dates: start: 20130201
  2. EBASTEL D [Concomitant]
     Indication: RHINITIS ALLERGIC
     Dosage: 1 DF, QD
     Route: 048
     Dates: start: 20150811
  3. ZYPREXA [Concomitant]
     Active Substance: OLANZAPINE
     Indication: PERSONALITY DISORDER
     Dosage: 1 DF, QD
     Route: 048
     Dates: start: 20120906
  4. ABACAVIR SULFATE + LAMIVUDINE [Suspect]
     Active Substance: ABACAVIR SULFATE\LAMIVUDINE
     Indication: HIV INFECTION
     Dosage: UNK UNK, QD
     Route: 048
     Dates: start: 20120713
  5. REYATAZ [Concomitant]
     Active Substance: ATAZANAVIR SULFATE
     Indication: HIV INFECTION
     Dosage: 2 UNK, UNK
     Route: 048
     Dates: start: 20120117
  6. XYZAL [Concomitant]
     Active Substance: LEVOCETIRIZINE DIHYDROCHLORIDE
     Indication: RHINITIS ALLERGIC
     Dosage: 1 UNK, UNK
     Route: 048
     Dates: start: 20150811
  7. XANAX [Concomitant]
     Active Substance: ALPRAZOLAM
     Indication: PERSONALITY DISORDER
     Dosage: 1 DF, QD
     Route: 048
     Dates: start: 20151023
  8. CARNIT [Concomitant]
     Indication: ANTACID THERAPY
     Dosage: 1 DF, BID
     Route: 048
     Dates: start: 20151111
  9. TYLENOL [Concomitant]
     Active Substance: ACETAMINOPHEN

REACTIONS (2)
  - Pyrexia [Recovered/Resolved]
  - Influenza [Recovered/Resolved]

NARRATIVE: CASE EVENT DATE: 20151221
